FAERS Safety Report 6805799-2 (Version None)
Quarter: 2010Q2

REPORT INFORMATION
  Report Type: 
  Country: None (occurrence: None)
  Receive Date: 20100629
  Receipt Date: 20081016
  Transmission Date: 20101027
  Serious: No
  Sender: FDA-Public Use
  Company Number: US-PFIZER INC-2005163099

PATIENT
  Sex: Male
  Weight: 99.79 kg

DRUGS (6)
  1. VIAGRA [Suspect]
     Indication: ERECTILE DYSFUNCTION
     Route: 048
     Dates: start: 20050101, end: 20050101
  2. ACETYLSALICYLIC ACID [Concomitant]
     Route: 065
  3. LANTUS [Concomitant]
     Route: 065
  4. AMARYL [Concomitant]
     Route: 065
  5. LIPITOR [Concomitant]
     Route: 065
  6. QUINAPRIL HYDROCHLORIDE [Concomitant]
     Route: 065

REACTIONS (2)
  - DRUG INEFFECTIVE [None]
  - ERECTILE DYSFUNCTION [None]
